FAERS Safety Report 11209108 (Version 1)
Quarter: 2015Q2

REPORT INFORMATION
  Report Type: Spontaneous
  Country: US (occurrence: US)
  Receive Date: 20150622
  Receipt Date: 20150622
  Transmission Date: 20150821
  Serious: Yes (Hospitalization, Other)
  Sender: FDA-Public Use
  Company Number: PHHY2015US072055

PATIENT
  Age: 55 Year
  Sex: Male

DRUGS (2)
  1. THIAMAZOLE [Suspect]
     Active Substance: METHIMAZOLE
     Indication: TOXIC NODULAR GOITRE
     Dosage: 20 MG, BID
     Route: 065
  2. CEPHALEXIN. [Concomitant]
     Active Substance: CEPHALEXIN
     Indication: PRODUCT USED FOR UNKNOWN INDICATION
     Route: 065

REACTIONS (8)
  - Osteomyelitis acute [Unknown]
  - Swelling [Unknown]
  - Cellulitis [Unknown]
  - Infection [Unknown]
  - Hypersensitivity vasculitis [Recovered/Resolved]
  - Pain in extremity [Unknown]
  - Dermatitis bullous [Recovered/Resolved]
  - Erythema [Unknown]
